FAERS Safety Report 8310484 (Version 2)
Quarter: 2013Q1

REPORT INFORMATION
  Report Type: Spontaneous
  Country: FR (occurrence: FR)
  Receive Date: 20111223
  Receipt Date: 20130218
  Transmission Date: 20140127
  Serious: Yes (Death, Hospitalization)
  Sender: FDA-Public Use
  Company Number: PHHY2011FR111079

PATIENT
  Age: 63 Year
  Sex: Female

DRUGS (1)
  1. PACLITAXEL [Suspect]
     Indication: UTERINE NEOPLASM
     Dosage: 270 MG, UNK
     Route: 041
     Dates: start: 20111026, end: 20111026

REACTIONS (1)
  - Arteriospasm coronary [Fatal]
